FAERS Safety Report 8052576-3 (Version None)
Quarter: 2012Q1

REPORT INFORMATION
  Report Type: 
  Country: None (occurrence: None)
  Receive Date: 20120118
  Receipt Date: 20120113
  Transmission Date: 20120608
  Serious: Yes (Other)
  Sender: FDA-Public Use
  Company Number: US-PFIZER INC-2011204183

PATIENT
  Sex: Female

DRUGS (17)
  1. OXYCODONE [Concomitant]
     Indication: PAIN
     Dosage: UNK
     Dates: start: 20020426, end: 20110302
  2. METHADONE [Concomitant]
     Indication: DRUG WITHDRAWAL SYNDROME
  3. NEXIUM [Concomitant]
     Indication: GASTROOESOPHAGEAL REFLUX DISEASE
     Dosage: UNK
     Dates: start: 20050817, end: 20100816
  4. HYDROCHLOROTHIAZIDE [Concomitant]
     Indication: HYPERTENSION
     Dosage: UNK
     Dates: start: 20041022, end: 20110914
  5. SIMVASTATIN [Concomitant]
     Indication: HYPERLIPIDAEMIA
     Dosage: UNK
     Dates: start: 20080625, end: 20090325
  6. PREDNISONE [Concomitant]
     Dosage: UNK
     Dates: start: 20051123, end: 20090826
  7. TRAMADOL [Concomitant]
     Indication: PAIN
     Dosage: UNK
     Dates: start: 20041026, end: 20110603
  8. LISINOPRIL [Concomitant]
     Indication: HYPERTENSION
     Dosage: UNK
     Dates: start: 20050921, end: 20111214
  9. LOTREL [Concomitant]
     Indication: HYPERTENSION
     Dosage: UNK
     Dates: start: 20041116, end: 20100426
  10. VICODIN [Concomitant]
     Indication: PAIN
     Dosage: UNK
     Dates: start: 20080319, end: 20111115
  11. CHANTIX [Suspect]
     Indication: SMOKING CESSATION THERAPY
     Dosage: 1 MG, UNK
     Dates: start: 20080809, end: 20090801
  12. ACETYLSALICYLIC ACID [Concomitant]
     Indication: INFLAMMATION
     Dosage: UNK
     Dates: start: 20080404, end: 20111214
  13. DIPHENHYDRAMINE [Concomitant]
     Indication: HYPERSENSITIVITY
     Dosage: UNK
     Dates: start: 20041022, end: 20110110
  14. NORVASC [Concomitant]
     Indication: HYPERTENSION
     Dosage: UNK
     Dates: start: 20041116, end: 20100426
  15. CEPHALEXIN [Concomitant]
     Indication: ANTIBIOTIC THERAPY
     Dosage: UNK
     Dates: start: 20051220, end: 20090211
  16. PRILOSEC [Concomitant]
     Indication: GASTROOESOPHAGEAL REFLUX DISEASE
     Dosage: UNK
     Dates: start: 20080625, end: 20111214
  17. METHADONE [Concomitant]
     Indication: PAIN
     Dosage: UNK
     Dates: start: 20070104, end: 20100629

REACTIONS (6)
  - EMOTIONAL DISTRESS [None]
  - SUICIDAL IDEATION [None]
  - DEPRESSION [None]
  - MENTAL DISORDER [None]
  - ANXIETY [None]
  - MOOD SWINGS [None]
